FAERS Safety Report 7461080-2 (Version None)
Quarter: 2011Q2

REPORT INFORMATION
  Report Type: 
  Country: None (occurrence: None)
  Receive Date: 20110505
  Receipt Date: 20110429
  Transmission Date: 20111010
  Serious: Yes (Disabling, Other)
  Sender: FDA-Public Use
  Company Number: US-MERCK-0609USA00786

PATIENT
  Age: 68 Year
  Sex: Female
  Weight: 60 kg

DRUGS (10)
  1. TRAMADOL HCL [Concomitant]
     Route: 065
  2. PREDNISONE [Concomitant]
     Route: 065
  3. ELAVIL [Concomitant]
     Indication: CLUSTER HEADACHE
     Route: 048
  4. ESTRACE [Concomitant]
     Route: 065
  5. SYNTHROID [Concomitant]
     Indication: HYPOTHYROIDISM
     Route: 065
  6. CITRACAL [Concomitant]
     Route: 065
  7. FOSAMAX [Suspect]
     Route: 048
     Dates: start: 20001201, end: 20060501
  8. VITAMINS (UNSPECIFIED) [Concomitant]
     Route: 065
  9. FOSAMAX [Suspect]
     Indication: OSTEOPOROSIS
     Route: 048
     Dates: start: 19950101, end: 20001201
  10. GLUCOSAMINE [Concomitant]
     Route: 065

REACTIONS (40)
  - OSTEONECROSIS OF JAW [None]
  - OSTEOMYELITIS [None]
  - BRONCHITIS [None]
  - HYPERTENSION [None]
  - MOUTH ULCERATION [None]
  - SPINAL OSTEOARTHRITIS [None]
  - JOINT SWELLING [None]
  - PULMONARY FIBROSIS [None]
  - INTERVERTEBRAL DISC DEGENERATION [None]
  - GINGIVAL DISORDER [None]
  - ANAEMIA [None]
  - TOOTH DISORDER [None]
  - PHARYNGEAL LESION [None]
  - FALL [None]
  - BACK PAIN [None]
  - MYOSITIS [None]
  - WHITE BLOOD CELL COUNT INCREASED [None]
  - CLUSTER HEADACHE [None]
  - HAEMANGIOMA [None]
  - CERUMEN IMPACTION [None]
  - LUMBAR SPINAL STENOSIS [None]
  - TONSILLAR CYST [None]
  - RECTAL HAEMORRHAGE [None]
  - PYREXIA [None]
  - ABSCESS [None]
  - LYMPHOCYTOSIS [None]
  - LYMPHADENOPATHY [None]
  - UPPER RESPIRATORY TRACT INFECTION [None]
  - SPINAL DISORDER [None]
  - OSTEOARTHRITIS [None]
  - SCOLIOSIS [None]
  - DEAFNESS [None]
  - CONTUSION [None]
  - URINARY TRACT INFECTION [None]
  - PHARYNGITIS [None]
  - SPINAL COMPRESSION FRACTURE [None]
  - ARTERIOSCLEROSIS [None]
  - LOW DENSITY LIPOPROTEIN INCREASED [None]
  - OSTEOPOROSIS [None]
  - DIARRHOEA [None]
